FAERS Safety Report 17028316 (Version 3)
Quarter: 2020Q1

REPORT INFORMATION
  Report Type: Spontaneous
  Country: US (occurrence: US)
  Receive Date: 20191113
  Receipt Date: 20200121
  Transmission Date: 20200409
  Serious: Yes (Hospitalization)
  Sender: FDA-Public Use
  Company Number: US-SIMILASAN CORPORATION-US-2019SIM000099

PATIENT

DRUGS (1)
  1. EARACHE RELIEF [HOMEOPATHICS] [Suspect]
     Active Substance: HOMEOPATHICS
     Indication: PRODUCT USED FOR UNKNOWN INDICATION
     Dosage: 5-10 DOSES/1X-2X A DAY/
     Route: 001
     Dates: start: 20191015, end: 20191020

REACTIONS (1)
  - Deafness unilateral [Unknown]
